FAERS Safety Report 15993768 (Version 1)
Quarter: 2019Q1

REPORT INFORMATION
  Report Type: Spontaneous
  Country: US (occurrence: US)
  Receive Date: 20190222
  Receipt Date: 20190222
  Transmission Date: 20190418
  Serious: No
  Sender: FDA-Public Use
  Company Number: US-SA-2019SA040715

PATIENT
  Age: 45 Year
  Sex: Male
  Weight: 129.25 kg

DRUGS (7)
  1. FABRAZYME [Suspect]
     Active Substance: AGALSIDASE BETA
     Indication: FABRY^S DISEASE
     Dosage: 140 MG, QOW
     Route: 041
     Dates: start: 20051109
  2. MS CONTIN [Concomitant]
     Active Substance: MORPHINE SULFATE
     Dosage: 1 DF, TID
     Route: 048
     Dates: start: 20130919
  3. LORATADINE. [Concomitant]
     Active Substance: LORATADINE
     Dosage: 10 MG, PRN
     Route: 048
  4. ASPIRIN [ACETYLSALICYLIC ACID] [Concomitant]
     Active Substance: ASPIRIN
     Dosage: 1 DF, QD
     Route: 048
     Dates: start: 20180323
  5. BUSPIRONE [Concomitant]
     Active Substance: BUSPIRONE HYDROCHLORIDE
     Dosage: 1 DF, BID
     Route: 048
     Dates: start: 20130919
  6. CYMBALTA [Concomitant]
     Active Substance: DULOXETINE HYDROCHLORIDE
     Dosage: 1 DF, QD
     Route: 048
     Dates: start: 20130919
  7. VICODIN [Concomitant]
     Active Substance: ACETAMINOPHEN\HYDROCODONE BITARTRATE
     Dosage: 1 DF
     Route: 048
     Dates: start: 20131106

REACTIONS (1)
  - Myalgia [Unknown]
